FAERS Safety Report 10662364 (Version 1)
Quarter: 2014Q4

REPORT INFORMATION
  Report Type: Spontaneous
  Country: US (occurrence: None)
  Receive Date: 20141216
  Receipt Date: 20141216
  Transmission Date: 20150529
  Serious: Yes (Other)
  Sender: FDA-Public Use
  Company Number: INS201412-000306

PATIENT
  Sex: Female
  Weight: 101.1 kg

DRUGS (15)
  1. FLUOXETINE [Concomitant]
     Active Substance: FLUOXETINE\FLUOXETINE HYDROCHLORIDE
  2. LEVOTHYROXINE [Concomitant]
     Active Substance: LEVOTHYROXINE
  3. CYCLOSPORINE. [Concomitant]
     Active Substance: CYCLOSPORINE
  4. QUETIAPINE ER (QUETIAPINE) [Concomitant]
  5. CALCIUM [Concomitant]
     Active Substance: CALCIUM
  6. ZOLPIDEM CONTROLLED RELEASE (ZOLPIDEM) [Concomitant]
  7. OMEPRAZOLE. [Concomitant]
     Active Substance: OMEPRAZOLE
  8. VITAMIN D [Concomitant]
     Active Substance: CHOLECALCIFEROL
  9. ASPIRIN (ACETYL SALICYLIC ACID) [Concomitant]
  10. IMPLANTED INTRATHECAL PUMP (MORPHINE AND BUPIVACAINE) (MORPHINE, BUPIVACAINE) [Concomitant]
  11. SUBSYS [Suspect]
     Active Substance: FENTANYL
     Indication: CANCER PAIN
  12. SYMBICORT (BUDESONIDE, FORMOTEROL FUMARATE DEHYDRATE) [Concomitant]
  13. ALLOPURINOL. [Concomitant]
     Active Substance: ALLOPURINOL
  14. VITAMIN B12 (COBALAMIN) [Concomitant]
  15. CELEBRIX (CELECOXIB) [Concomitant]

REACTIONS (4)
  - Renal cancer [None]
  - Drug ineffective [None]
  - Therapeutic response decreased [None]
  - Malignant neoplasm progression [None]
